FAERS Safety Report 13813485 (Version 1)
Quarter: 2017Q3

REPORT INFORMATION
  Report Type: Spontaneous
  Country: FR (occurrence: FR)
  Receive Date: 20170730
  Receipt Date: 20170730
  Transmission Date: 20171127
  Serious: Yes (Other)
  Sender: FDA-Public Use
  Company Number: PHHY2017FR111033

PATIENT
  Age: 76 Year
  Sex: Female

DRUGS (1)
  1. EXFORGE [Suspect]
     Active Substance: AMLODIPINE BESYLATE\VALSARTAN
     Indication: PRODUCT USED FOR UNKNOWN INDICATION
     Dosage: UNK
     Route: 065
     Dates: start: 201601, end: 20170704

REACTIONS (3)
  - Cough [Unknown]
  - Intracranial pressure increased [Not Recovered/Not Resolved]
  - Eye pain [Unknown]
